FAERS Safety Report 7801311-X (Version None)
Quarter: 2011Q4

REPORT INFORMATION
  Report Type: 
  Country: None (occurrence: None)
  Receive Date: 20111006
  Receipt Date: 20111006
  Transmission Date: 20120403
  Serious: Yes (Hospitalization)
  Sender: FDA-Public Use
  Company Number: None

PATIENT
  Age: 78 Year
  Sex: Female
  Weight: 65.9 kg

DRUGS (10)
  1. VIT D [Concomitant]
  2. NASONEX [Concomitant]
  3. ASPIRIN [Suspect]
     Indication: AORTIC STENOSIS
     Dosage: 325 MG DAILY PO CHRONIC
     Route: 048
  4. FISH OIL [Concomitant]
  5. CITRACAL + VIT D [Concomitant]
  6. FERROUS SULFATE TAB [Concomitant]
  7. MICARDIS [Concomitant]
  8. SALINE NS [Concomitant]
  9. LEVOXYL [Concomitant]
  10. MULTAQ [Concomitant]

REACTIONS (3)
  - GASTRITIS [None]
  - RECTAL POLYP [None]
  - ANAEMIA [None]
